FAERS Safety Report 25452412 (Version 1)
Quarter: 2025Q2

REPORT INFORMATION
  Report Type: Spontaneous
  Country: US (occurrence: US)
  Receive Date: 20250618
  Receipt Date: 20250618
  Transmission Date: 20250716
  Serious: No
  Sender: FERRING
  Company Number: US-FERRINGPH-2025FE01756

PATIENT
  Age: 76 Year
  Sex: Male

DRUGS (2)
  1. REBYOTA [Suspect]
     Active Substance: DONOR HUMAN STOOL
     Indication: Enterocolitis
     Dosage: 150 ML, ONCE/SINGLE
     Route: 054
     Dates: start: 20250224, end: 20250224
  2. REBYOTA [Suspect]
     Active Substance: DONOR HUMAN STOOL
     Route: 054

REACTIONS (3)
  - Clostridium test positive [Unknown]
  - Diarrhoea [Recovering/Resolving]
  - Drug ineffective [Unknown]

NARRATIVE: CASE EVENT DATE: 20250201
